FAERS Safety Report 5794006-8 (Version None)
Quarter: 2008Q2

REPORT INFORMATION
  Report Type: 
  Country: None (occurrence: None)
  Receive Date: 20080627
  Receipt Date: 20080624
  Transmission Date: 20081010
  Serious: Yes (Death, Hospitalization)
  Sender: FDA-Public Use
  Company Number: ZW-ABBOTT-08P-190-0459157-00

PATIENT
  Age: 34 Year
  Sex: Female
  Weight: 54.6 kg

DRUGS (5)
  1. KALETRA [Suspect]
     Indication: HIV INFECTION
     Dosage: 200MG/50MG
     Route: 048
     Dates: start: 20080422, end: 20080509
  2. TENOFOVIR DISOPROXIL FUMARATE [Concomitant]
     Indication: HIV INFECTION
     Route: 048
     Dates: start: 20080422, end: 20080509
  3. EMTRICITABINE [Concomitant]
     Indication: HIV INFECTION
     Route: 048
     Dates: start: 20080422, end: 20080509
  4. BACTRIM [Concomitant]
     Indication: OPPORTUNISTIC INFECTION PROPHYLAXIS
  5. FERROUS SULFATE TAB [Concomitant]
     Indication: ANAEMIA

REACTIONS (1)
  - RENAL FAILURE ACUTE [None]
